FAERS Safety Report 8995769 (Version 1)
Quarter: 2013Q1

REPORT INFORMATION
  Report Type: Spontaneous
  Country: US (occurrence: US)
  Receive Date: 20130103
  Receipt Date: 20130103
  Transmission Date: 20140127
  Serious: No
  Sender: FDA-Public Use
  Company Number: US-ABBOTT-12P-163-0985553-00

PATIENT
  Sex: Female
  Weight: 54.48 kg

DRUGS (4)
  1. SYNTHROID [Suspect]
     Indication: PRODUCT USED FOR UNKNOWN INDICATION
     Dates: start: 1995
  2. COLESTIPOL [Concomitant]
     Indication: BLOOD CHOLESTEROL INCREASED
  3. RANITIDINE [Concomitant]
     Indication: GASTROOESOPHAGEAL REFLUX DISEASE
  4. LOSARTIN [Concomitant]
     Indication: PRODUCT USED FOR UNKNOWN INDICATION

REACTIONS (2)
  - Urticaria [Not Recovered/Not Resolved]
  - Diarrhoea [Unknown]
